FAERS Safety Report 7538794-9 (Version None)
Quarter: 2011Q2

REPORT INFORMATION
  Report Type: 
  Country: None (occurrence: None)
  Receive Date: 20110610
  Receipt Date: 20110512
  Transmission Date: 20111010
  Serious: Yes (Hospitalization, Other)
  Sender: FDA-Public Use
  Company Number: US-BAYER-2011-019328

PATIENT
  Age: 41 Year
  Sex: Female
  Weight: 52.154 kg

DRUGS (6)
  1. WELLBUTRIN [Concomitant]
     Indication: DEPRESSION
  2. YASMIN [Suspect]
     Indication: ORAL CONTRACEPTION
     Dosage: UNK
     Dates: start: 20030101, end: 20080101
  3. MULTI-VITAMINS [Concomitant]
  4. DROSPIRENONE AND ETHINYL ESTRADIOL [Suspect]
     Indication: ORAL CONTRACEPTION
     Dosage: UNK
     Dates: start: 20030101, end: 20080101
  5. WELLBUTRIN [Concomitant]
     Indication: STRESS
  6. YAZ [Suspect]
     Indication: PRODUCT USED FOR UNKNOWN INDICATION

REACTIONS (6)
  - NEPHROLITHIASIS [None]
  - LIVER DISORDER [None]
  - PAIN [None]
  - GALLBLADDER DISORDER [None]
  - CHOLECYSTITIS CHRONIC [None]
  - HEART RATE IRREGULAR [None]
